FAERS Safety Report 9909342 (Version 1)
Quarter: 2014Q1

REPORT INFORMATION
  Report Type: Spontaneous
  Country: US (occurrence: None)
  Receive Date: 20140214
  Receipt Date: 20140214
  Transmission Date: 20141002
  Serious: No
  Sender: FDA-Public Use
  Company Number: None

PATIENT
  Age: 22 Year
  Sex: Male

DRUGS (4)
  1. HALOPERIDOL [Suspect]
     Route: 048
  2. RISPERIDONE [Concomitant]
  3. DYPHENHYDROMINE [Concomitant]
  4. TDAP VACCINE [Concomitant]

REACTIONS (1)
  - Dystonia [None]
